FAERS Safety Report 24289309 (Version 1)
Quarter: 2024Q3

REPORT INFORMATION
  Report Type: Spontaneous
  Country: DE (occurrence: DE)
  Receive Date: 20240906
  Receipt Date: 20240906
  Transmission Date: 20241017
  Serious: Yes (Other)
  Sender: SANDOZ
  Company Number: DE-BAXTER-2021BAX004876

PATIENT
  Age: 34 Year
  Sex: Male

DRUGS (19)
  1. ADRIAMYCIN [Suspect]
     Active Substance: DOXORUBICIN HYDROCHLORIDE
     Indication: Burkitt^s lymphoma
     Dosage: AFTER AT LEAST 14 DAYS (BLOCK B)
     Route: 042
  2. ADRIAMYCIN [Suspect]
     Active Substance: DOXORUBICIN HYDROCHLORIDE
     Dosage: UNKONE COURSE AS SECONDARY TREATMENT
     Route: 065
  3. CYTARABINE [Suspect]
     Active Substance: CYTARABINE
     Indication: Burkitt^s lymphoma
     Dosage: OVER 1 H (BLOCK A)
     Route: 042
  4. CYTARABINE [Suspect]
     Active Substance: CYTARABINE
     Dosage: ONE COURSE AS SECONDARY TREATMENT
     Route: 065
  5. DEXAMETHASONE [Suspect]
     Active Substance: DEXAMETHASONE
     Indication: Burkitt^s lymphoma
     Dosage: ONE COURSE
     Route: 065
  6. CYCLOPHOSPHAMIDE [Suspect]
     Active Substance: CYCLOPHOSPHAMIDE
     Dosage: 200 MG/M2 (PRELIMINARY PHASE (FACULTATIVE) FOR 1-5 DAYS)
     Route: 042
  7. CYCLOPHOSPHAMIDE [Suspect]
     Active Substance: CYCLOPHOSPHAMIDE
     Indication: Product used for unknown indication
     Dosage: FOR 1-5 DAYS, AFTER AT LEAST 14 DAYS (BLOCK B) (ENDOXAN LYOPHILISAT)
     Route: 042
  8. CYCLOPHOSPHAMIDE [Suspect]
     Active Substance: CYCLOPHOSPHAMIDE
     Dosage: INTRAVENOUSLY OR ORALLY DIRECTLY AFTERWARD (BLOCK A) ON 1-5 DAYS
     Route: 065
  9. CYCLOPHOSPHAMIDE [Suspect]
     Active Substance: CYCLOPHOSPHAMIDE
     Dosage: UNK (ONE COURSE AS SECONDARY TREATMENT) (ENDOXAN LYOPHILISAT)
     Route: 065
  10. METHOTREXATE [Suspect]
     Active Substance: METHOTREXATE
     Dosage: 15 MG (BLOCK A)
     Route: 037
  11. METHOTREXATE [Suspect]
     Active Substance: METHOTREXATE
     Dosage: 15 MG (AFTER AT LEAST 14 DAYS (BLOCK B))
     Route: 037
  12. METHOTREXATE [Suspect]
     Active Substance: METHOTREXATE
     Dosage: 450 MG/M2 (AFTER AT LEAST 14 DAYS, OVER 24 H)
     Route: 042
  13. METHOTREXATE [Suspect]
     Active Substance: METHOTREXATE
     Dosage: 450 MG/M2 (OVER 24 H (BLOCK A))
     Route: 042
  14. METHOTREXATE [Suspect]
     Active Substance: METHOTREXATE
     Dosage: 50 MG/M2 AFTER AT LEAST 14 DAYS, BOLUS (BLOCK B)
     Route: 042
  15. METHOTREXATE [Suspect]
     Active Substance: METHOTREXATE
     Indication: Burkitt^s lymphoma
     Dosage: 50 MG/M2 INTRAVENOUSLY AS BOLUS (BLOCK A)
     Route: 042
  16. METHOTREXATE [Suspect]
     Active Substance: METHOTREXATE
     Dosage: UNK (ONE COURSE AS SECONDARY TREATMENT)
     Route: 065
  17. PREDNISONE [Suspect]
     Active Substance: PREDNISONE
     Indication: Burkitt^s lymphoma
     Dosage: 0.5-1 MG/KG, ON DAYS 1-5 AS PRELIMINARY PHASE (FACULTATIVE)
     Route: 048
  18. TENIPOSIDE [Suspect]
     Active Substance: TENIPOSIDE
     Indication: Burkitt^s lymphoma
     Dosage: UNK
     Route: 065
  19. LEUCOVORIN [Concomitant]
     Active Substance: LEUCOVORIN\LEUCOVORIN CALCIUM
     Indication: Prophylaxis
     Dosage: 30 MG EACH 36, 42, 48, 54, 60, AND 66 H AFTER THE METHOTREXATE INFUSION
     Route: 065

REACTIONS (3)
  - Alopecia [Unknown]
  - Anaemia [Unknown]
  - Leukopenia [Unknown]
